FAERS Safety Report 12078808 (Version 1)
Quarter: 2016Q1

REPORT INFORMATION
  Report Type: Spontaneous
  Country: FR (occurrence: FR)
  Receive Date: 20160216
  Receipt Date: 20160216
  Transmission Date: 20160526
  Serious: Yes (Other)
  Sender: FDA-Public Use
  Company Number: FR-009507513-1602FRA005755

PATIENT
  Sex: Female
  Weight: 60 kg

DRUGS (1)
  1. COZAAR [Suspect]
     Active Substance: LOSARTAN POTASSIUM
     Dosage: UNK
     Route: 048
     Dates: end: 20160205

REACTIONS (3)
  - Feeling abnormal [Unknown]
  - Pleural effusion [Unknown]
  - Aphasia [Unknown]
